FAERS Safety Report 17034409 (Version 1)
Quarter: 2019Q4

REPORT INFORMATION
  Report Type: Spontaneous
  Country: NG (occurrence: NG)
  Receive Date: 20191115
  Receipt Date: 20191115
  Transmission Date: 20200122
  Serious: Yes (Congenital Anomaly, Other)
  Sender: FDA-Public Use
  Company Number: NG-LUPIN PHARMACEUTICALS INC.-2019-07362

PATIENT
  Age: 6 Hour
  Sex: Female
  Weight: 2.6 kg

DRUGS (1)
  1. LEVONORGESTREL. [Suspect]
     Active Substance: LEVONORGESTREL
     Indication: CONTRACEPTION
     Dosage: UNK
     Route: 064

REACTIONS (5)
  - Haematocrit decreased [Unknown]
  - Limb malformation [Unknown]
  - Teratogenicity [Unknown]
  - Thrombocytopenia-absent radius syndrome [Unknown]
  - Foetal exposure during pregnancy [Unknown]
